FAERS Safety Report 15540402 (Version 1)
Quarter: 2018Q4

REPORT INFORMATION
  Report Type: Spontaneous
  Country: US (occurrence: US)
  Receive Date: 20181016
  Receipt Date: 20181016
  Transmission Date: 20190205
  Serious: Yes (Hospitalization)
  Sender: FDA-Public Use
  Company Number: None

PATIENT
  Age: 38 Year
  Sex: Female

DRUGS (14)
  1. GABAPENTIN. [Concomitant]
     Active Substance: GABAPENTIN
  2. DULOXETINE. [Concomitant]
     Active Substance: DULOXETINE
  3. OXYCODONE [Concomitant]
     Active Substance: OXYCODONE
  4. FUROSEMIDE. [Concomitant]
     Active Substance: FUROSEMIDE
  5. AMOX/K CLAV [Concomitant]
     Active Substance: AMOXICILLIN\CLAVULANATE POTASSIUM
  6. AMLODIPINE [Concomitant]
     Active Substance: AMLODIPINE BESYLATE
  7. ONDANSETRON [Concomitant]
     Active Substance: ONDANSETRON
  8. WARFARIN [Concomitant]
     Active Substance: WARFARIN
  9. CIMZIA [Suspect]
     Active Substance: CERTOLIZUMAB PEGOL
     Indication: CROHN^S DISEASE
     Dosage: FREQUENCY: Q4WKS
     Route: 058
     Dates: start: 20160909
  10. ARIXTRA [Concomitant]
     Active Substance: FONDAPARINUX SODIUM
  11. CYCLOBENZAPRM [Concomitant]
  12. OMEPRAZOLE. [Concomitant]
     Active Substance: OMEPRAZOLE
  13. BUDESONIDE. [Concomitant]
     Active Substance: BUDESONIDE
  14. VITAMIN D [Concomitant]
     Active Substance: CHOLECALCIFEROL

REACTIONS (2)
  - Therapy cessation [None]
  - Fistula of small intestine [None]

NARRATIVE: CASE EVENT DATE: 201807
